FAERS Safety Report 12679284 (Version 1)
Quarter: 2016Q3

REPORT INFORMATION
  Report Type: Spontaneous
  Country: FR (occurrence: FR)
  Receive Date: 20160824
  Receipt Date: 20160824
  Transmission Date: 20161109
  Serious: Yes (Other)
  Sender: FDA-Public Use
  Company Number: FR-ASTRAZENECA-2016SE88675

PATIENT
  Age: 18722 Day
  Sex: Male

DRUGS (6)
  1. VICTOZA [Concomitant]
     Active Substance: LIRAGLUTIDE
  2. OLMETEC [Concomitant]
     Active Substance: OLMESARTAN MEDOXOMIL
     Dosage: 20.0MG UNKNOWN
  3. CRESTOR [Suspect]
     Active Substance: ROSUVASTATIN CALCIUM
     Indication: LOW DENSITY LIPOPROTEIN INCREASED
     Route: 048
     Dates: start: 201606, end: 20160621
  4. NOVONORM [Concomitant]
     Active Substance: REPAGLINIDE
     Dosage: 2.0MG UNKNOWN
  5. GLUCOPHAGE [Concomitant]
     Active Substance: METFORMIN HYDROCHLORIDE
     Dosage: 1000.0MG UNKNOWN
  6. ISOPHANE INSULIN [Concomitant]
     Active Substance: INSULIN NOS

REACTIONS (1)
  - Muscle rupture [Recovered/Resolved]

NARRATIVE: CASE EVENT DATE: 20160619
